FAERS Safety Report 12402147 (Version 1)
Quarter: 2016Q2

REPORT INFORMATION
  Report Type: Spontaneous
  Country: US (occurrence: US)
  Receive Date: 20160525
  Receipt Date: 20160525
  Transmission Date: 20160815
  Serious: Yes (Other)
  Sender: FDA-Public Use
  Company Number: US-SA-2016SA095912

PATIENT
  Age: 49 Year
  Sex: Female

DRUGS (14)
  1. IBUPROFEN. [Concomitant]
     Active Substance: IBUPROFEN
  2. MODAFINIL. [Concomitant]
     Active Substance: MODAFINIL
  3. ALBUTEROL. [Concomitant]
     Active Substance: ALBUTEROL
  4. AUBAGIO [Suspect]
     Active Substance: TERIFLUNOMIDE
     Indication: MULTIPLE SCLEROSIS
     Route: 048
     Dates: start: 201509
  5. VITAMIN D [Concomitant]
     Active Substance: CHOLECALCIFEROL
  6. TOPAMAX [Concomitant]
     Active Substance: TOPIRAMATE
  7. PHRENILIN FORTE [Concomitant]
     Active Substance: ACETAMINOPHEN\BUTALBITAL
  8. PROVIGIL [Concomitant]
     Active Substance: MODAFINIL
  9. FOLIC ACID. [Concomitant]
     Active Substance: FOLIC ACID
  10. BACLOFEN. [Concomitant]
     Active Substance: BACLOFEN
  11. NEXIUM [Concomitant]
     Active Substance: ESOMEPRAZOLE MAGNESIUM
  12. LASIX [Concomitant]
     Active Substance: FUROSEMIDE
  13. VENTOLIN [Concomitant]
     Active Substance: ALBUTEROL SULFATE
  14. DITROPAN XL [Concomitant]
     Active Substance: OXYBUTYNIN CHLORIDE

REACTIONS (7)
  - Cough [Unknown]
  - Gallbladder disorder [Unknown]
  - Nasopharyngitis [Unknown]
  - Condition aggravated [Unknown]
  - Pneumonia [Unknown]
  - Alopecia [Unknown]
  - Arthralgia [Unknown]

NARRATIVE: CASE EVENT DATE: 2016
